FAERS Safety Report 12695922 (Version 3)
Quarter: 2016Q3

REPORT INFORMATION
  Report Type: Report from Study
  Country: US (occurrence: US)
  Receive Date: 20160829
  Receipt Date: 20160916
  Transmission Date: 20161109
  Serious: Yes (Hospitalization)
  Sender: FDA-Public Use
  Company Number: US-ACTELION-A-US2016-141241

PATIENT
  Age: 70 Year
  Sex: Female

DRUGS (9)
  1. TREPROSTINIL DIOLAMIN [Concomitant]
     Active Substance: TREPROSTINIL DIOLAMINE
  2. CLONIDINE. [Concomitant]
     Active Substance: CLONIDINE
  3. TORSEMIDE. [Concomitant]
     Active Substance: TORSEMIDE
     Dosage: 10 UNK, QD
  4. SILDENAFIL. [Concomitant]
     Active Substance: SILDENAFIL
     Dosage: 20 UNK, TID
  5. OPSUMIT [Suspect]
     Active Substance: MACITENTAN
     Indication: PULMONARY ARTERIAL HYPERTENSION
     Dosage: 10 MG, UNK
     Route: 048
     Dates: start: 20150925
  6. ALLOPURINOL. [Concomitant]
     Active Substance: ALLOPURINOL
     Dosage: 300 UNK, QD
  7. ZOCOR [Concomitant]
     Active Substance: SIMVASTATIN
     Dosage: 10 UNK, QD
  8. REVATIO [Concomitant]
     Active Substance: SILDENAFIL CITRATE
  9. MESALAMINE. [Concomitant]
     Active Substance: MESALAMINE
     Dosage: 1.2 G, BID

REACTIONS (8)
  - Dehydration [Unknown]
  - Vomiting [Unknown]
  - Duodenal ulcer [Unknown]
  - Blood count abnormal [Unknown]
  - Diarrhoea [Unknown]
  - Nausea [Unknown]
  - Malaise [Unknown]
  - Urinary tract infection [Unknown]
